FAERS Safety Report 25890674 (Version 1)
Quarter: 2025Q4

REPORT INFORMATION
  Report Type: Spontaneous
  Country: EU (occurrence: EU)
  Receive Date: 20251007
  Receipt Date: 20251007
  Transmission Date: 20260118
  Serious: Yes (Other)
  Sender: BRISTOL-MYERS SQUIBB COMPANY
  Company Number: None

PATIENT
  Age: 86 Year
  Sex: Female
  Weight: 54 kg

DRUGS (1)
  1. OPDIVO [Suspect]
     Active Substance: NIVOLUMAB
     Indication: Malignant melanoma
     Dosage: 480 MG EVERY 4 WEEKS
     Dates: start: 20250326, end: 20250721

REACTIONS (2)
  - Cholestasis [Not Recovered/Not Resolved]
  - Immune-mediated cholangitis [Not Recovered/Not Resolved]

NARRATIVE: CASE EVENT DATE: 20250820
